FAERS Safety Report 22210415 (Version 1)
Quarter: 2023Q2

REPORT INFORMATION
  Report Type: Report from Study
  Country: CZ (occurrence: CZ)
  Receive Date: 20230414
  Receipt Date: 20230414
  Transmission Date: 20230722
  Serious: Yes (Hospitalization, Other)
  Sender: FDA-Public Use
  Company Number: CZ-CELLTRION INC.-2022CZ022339

PATIENT

DRUGS (89)
  1. RITUXIMAB [Suspect]
     Active Substance: RITUXIMAB
     Indication: Diffuse large B-cell lymphoma stage III
     Dosage: 375 MG/M2, EVERY 3 WEEKS, R-CHOP
     Route: 042
     Dates: start: 20220419
  2. RITUXIMAB [Suspect]
     Active Substance: RITUXIMAB
     Indication: Diffuse large B-cell lymphoma
     Dosage: UNK, 1Q3W/UNK, EVERY 3 WEEKS
     Route: 042
  3. RITUXIMAB [Suspect]
     Active Substance: RITUXIMAB
     Dosage: 375 MG/M2 EVERY 3 WEEKS / R CHOP
     Route: 042
     Dates: start: 20220419
  4. DOXORUBICIN HYDROCHLORIDE [Suspect]
     Active Substance: DOXORUBICIN HYDROCHLORIDE
     Indication: Diffuse large B-cell lymphoma stage III
     Dosage: UNK, EVERY 3 WEEKS
     Route: 042
  5. DOXORUBICIN HYDROCHLORIDE [Suspect]
     Active Substance: DOXORUBICIN HYDROCHLORIDE
     Indication: Diffuse large B-cell lymphoma
     Dosage: 50 MG/M2, EVERY 3 WEEK, R-CHOP
     Route: 042
     Dates: start: 20220419, end: 20220419
  6. CYCLOPHOSPHAMIDE [Suspect]
     Active Substance: CYCLOPHOSPHAMIDE
     Indication: Diffuse large B-cell lymphoma stage III
     Dosage: UNK, EVERY 3 WEEKS/UNK, EVERY 3 WK, R-CHOP
     Route: 042
  7. CYCLOPHOSPHAMIDE [Suspect]
     Active Substance: CYCLOPHOSPHAMIDE
     Indication: Diffuse large B-cell lymphoma
     Dosage: 750 MG/M2 EVERY 3 WEEKS/UNK, EVERY 3 WK, R-CHOP
     Route: 042
     Dates: start: 20220419, end: 20220419
  8. CYCLOPHOSPHAMIDE [Suspect]
     Active Substance: CYCLOPHOSPHAMIDE
     Dosage: UNK, EVERY 3 WEEKS
  9. CYCLOPHOSPHAMIDE [Suspect]
     Active Substance: CYCLOPHOSPHAMIDE
     Dosage: R-CHOP
     Route: 042
     Dates: start: 20220419
  10. EPCORITAMAB [Suspect]
     Active Substance: EPCORITAMAB
     Indication: Diffuse large B-cell lymphoma stage III
     Dosage: REGIMEN#1: UNK
     Route: 058
  11. EPCORITAMAB [Suspect]
     Active Substance: EPCORITAMAB
     Indication: Diffuse large B-cell lymphoma
     Dosage: REGIMEN#2: FULL DOSE 48 MG, WEEKLY
     Route: 058
     Dates: start: 20220503
  12. EPCORITAMAB [Suspect]
     Active Substance: EPCORITAMAB
     Dosage: PRIMING DOSE: 0.16 MG, SINGLE
     Route: 058
     Dates: start: 20220419, end: 20220419
  13. EPCORITAMAB [Suspect]
     Active Substance: EPCORITAMAB
     Dosage: INTERMEDIATE DOSE: 0.8 MG, SINGLE
     Route: 058
     Dates: start: 20220426, end: 20220426
  14. EPCORITAMAB [Suspect]
     Active Substance: EPCORITAMAB
     Dosage: UNK
  15. VINCRISTINE SULFATE [Suspect]
     Active Substance: VINCRISTINE SULFATE
     Indication: Diffuse large B-cell lymphoma stage III
     Dosage: 1.4 MG/M2, EVERY 3 WEEKS, R-CHOP
     Route: 042
     Dates: start: 20220419, end: 20220419
  16. VINCRISTINE SULFATE [Suspect]
     Active Substance: VINCRISTINE SULFATE
     Indication: Diffuse large B-cell lymphoma stage III
     Dosage: UNK, EVERY 3 WK, R-CHOP
     Route: 042
  17. VINCRISTINE SULFATE [Suspect]
     Active Substance: VINCRISTINE SULFATE
     Dosage: UNK, EVERY 3 WK, R-CHOP
     Route: 042
     Dates: start: 20220419, end: 20220419
  18. VINCRISTINE SULFATE [Suspect]
     Active Substance: VINCRISTINE SULFATE
     Dosage: UNK. EVERY 3 WEEKS
  19. VINCRISTINE SULFATE [Suspect]
     Active Substance: VINCRISTINE SULFATE
     Dosage: 1.4 MG/M2, EVERY 3 WEEKS, R-CHOP
     Route: 042
     Dates: start: 20220419
  20. PREDNISONE [Suspect]
     Active Substance: PREDNISONE
     Indication: Diffuse large B-cell lymphoma
     Dosage: UNK
     Route: 048
  21. PREDNISONE [Suspect]
     Active Substance: PREDNISONE
     Indication: Diffuse large B-cell lymphoma
     Dosage: UNK, QD, R-CHOP/UNK, 1X/DAY
     Route: 048
  22. PREDNISONE [Suspect]
     Active Substance: PREDNISONE
     Dosage: 100 MG (REGIMEN #2: 100 MG, QD)/ 100 MG, 1X/DAY
     Route: 048
     Dates: start: 20220503, end: 20220506
  23. PREDNISONE [Suspect]
     Active Substance: PREDNISONE
     Dosage: UNK
     Route: 048
  24. PREDNISONE [Suspect]
     Active Substance: PREDNISONE
     Dosage: 100 MG, 1X/DAY
     Dates: start: 20220503, end: 20220506
  25. PREDNISONE [Suspect]
     Active Substance: PREDNISONE
     Dosage: UNK UNK, 1X/DAY (QD)
     Route: 065
     Dates: start: 20220503, end: 20220506
  26. PREDNISONE [Suspect]
     Active Substance: PREDNISONE
     Dosage: UNK, QD
     Route: 058
  27. PREDNISONE [Suspect]
     Active Substance: PREDNISONE
     Dosage: 100 MILLIGRAM, QD/100 MG, 1X/DAY
     Route: 048
     Dates: start: 20220426, end: 20220429
  28. PREDNISONE [Suspect]
     Active Substance: PREDNISONE
     Dosage: 1000 UNK
     Route: 048
     Dates: start: 20220420, end: 20220423
  29. PREDNISONE [Suspect]
     Active Substance: PREDNISONE
     Dosage: 100 MG, QD
     Route: 048
     Dates: start: 20220420, end: 20220429
  30. PREDNISONE [Suspect]
     Active Substance: PREDNISONE
     Dosage: UNK
     Dates: start: 20220405
  31. PREDNISONE [Suspect]
     Active Substance: PREDNISONE
     Dosage: UNK
  32. PREDNISONE [Suspect]
     Active Substance: PREDNISONE
     Dosage: 100 MILLIGRAM, QD/100 MG, 1X/DAY
     Route: 048
     Dates: start: 20220420, end: 20220423
  33. VINCRISTINE [Suspect]
     Active Substance: VINCRISTINE
     Indication: Diffuse large B-cell lymphoma stage III
     Dosage: UNK, 1Q3W
     Route: 042
  34. DOXORUBICIN [Suspect]
     Active Substance: DOXORUBICIN
     Indication: Diffuse large B-cell lymphoma stage III
     Dosage: UNK, 1Q3W
     Route: 042
  35. DOXORUBICIN [Suspect]
     Active Substance: DOXORUBICIN
     Indication: Diffuse large B-cell lymphoma
     Dosage: UNK, EVERY 3 WEEKS/UNK, EVERY 3 WK, R-CHOP
     Route: 042
  36. DOXORUBICIN [Suspect]
     Active Substance: DOXORUBICIN
     Dosage: 50 MG/M2, EVERY 3 WEEKS/ UNK, EVERY 3 WK, R-CHOP
     Route: 042
     Dates: start: 20220419, end: 20220419
  37. DOXORUBICIN [Suspect]
     Active Substance: DOXORUBICIN
     Dosage: 50 MG/M2, EVERY 3 WEEKS, R-CHOP
     Route: 042
     Dates: start: 20220419
  38. CYCLOPHOSPHAMIDE [Suspect]
     Active Substance: CYCLOPHOSPHAMIDE
     Indication: Diffuse large B-cell lymphoma stage III
     Dosage: UNK, EVERY 3 WK, R-CHOP
     Route: 042
     Dates: start: 20220419, end: 20220419
  39. CYCLOPHOSPHAMIDE [Suspect]
     Active Substance: CYCLOPHOSPHAMIDE
     Indication: Diffuse large B-cell lymphoma
     Dosage: 750 MG/M2, EVERY 3 WEEKS, R-CHOP
     Route: 042
     Dates: start: 20220419
  40. VINCRISTINE [Suspect]
     Active Substance: VINCRISTINE
     Indication: Diffuse large B-cell lymphoma stage III
     Dosage: UNK, 1Q3W
     Route: 042
  41. VINCRISTINE [Suspect]
     Active Substance: VINCRISTINE
     Indication: Diffuse large B-cell lymphoma
     Dosage: UNK, EVERY 3 WEEKS
     Route: 042
  42. METHYLPREDNISOLONE SODIUM SUCCINATE [Suspect]
     Active Substance: METHYLPREDNISOLONE SODIUM SUCCINATE
     Indication: Diffuse large B-cell lymphoma stage III
     Dosage: 80 MILLIGRAM
     Route: 042
     Dates: start: 20220419, end: 20220419
  43. EPCORITAMAB [Suspect]
     Active Substance: EPCORITAMAB
     Indication: Diffuse large B-cell lymphoma stage III
     Dosage: 0.8 MG
     Route: 058
     Dates: start: 20220426, end: 20220426
  44. EPCORITAMAB [Suspect]
     Active Substance: EPCORITAMAB
     Dosage: 48 MG, 1/WEEK
     Route: 058
     Dates: start: 20220503
  45. EPCORITAMAB [Suspect]
     Active Substance: EPCORITAMAB
     Dosage: 0.16 MG
     Route: 058
     Dates: start: 20220419, end: 20220419
  46. SOLU-MEDROL [Suspect]
     Active Substance: METHYLPREDNISOLONE SODIUM SUCCINATE
     Indication: Diffuse large B-cell lymphoma stage III
     Dosage: 80 MG NEXT DOSE 19/APR/2022
     Route: 042
     Dates: start: 20220413, end: 20220419
  47. SOLU-MEDROL [Suspect]
     Active Substance: METHYLPREDNISOLONE SODIUM SUCCINATE
     Indication: Diffuse large B-cell lymphoma
     Dosage: 80 MG
     Route: 042
     Dates: start: 20220419, end: 20220419
  48. OMEPRAZOLE [Concomitant]
     Active Substance: OMEPRAZOLE
     Indication: Product used for unknown indication
     Dosage: UNK
     Dates: start: 20220426
  49. GRANISETRON HYDROCHLORIDE [Concomitant]
     Active Substance: GRANISETRON HYDROCHLORIDE
     Indication: Product used for unknown indication
     Dosage: UNK
     Dates: start: 20220422
  50. AMLODIPINE BESYLATE\LISINOPRIL [Concomitant]
     Active Substance: AMLODIPINE BESYLATE\LISINOPRIL
     Indication: Product used for unknown indication
     Dosage: UNK
     Dates: start: 2016
  51. NADROPARIN CALCIUM [Concomitant]
     Active Substance: NADROPARIN CALCIUM
     Indication: Product used for unknown indication
     Dosage: UNK
     Dates: start: 20220414
  52. Paralen [Concomitant]
     Indication: Premedication
     Dosage: 1000 MG
     Route: 048
     Dates: start: 20220426, end: 20220426
  53. Paralen [Concomitant]
     Dosage: 1000 MG
     Route: 048
     Dates: start: 20220419, end: 20220419
  54. Paralen [Concomitant]
     Dosage: 1000 MG
     Route: 048
     Dates: start: 20220503, end: 20220503
  55. Paralen [Concomitant]
     Dosage: 1000 DF
     Route: 048
     Dates: start: 20220419, end: 20220503
  56. Paralen [Concomitant]
     Dosage: 1000 MG
     Route: 048
     Dates: start: 20220426, end: 20220503
  57. Paralen [Concomitant]
     Dosage: 1000 MG
     Route: 048
     Dates: start: 20220419, end: 20220503
  58. FLUCONAZOLE [Concomitant]
     Active Substance: FLUCONAZOLE
     Indication: Product used for unknown indication
     Dosage: UNK
     Dates: start: 20220426
  59. POTASSIUM CHLORIDE [Concomitant]
     Active Substance: POTASSIUM CHLORIDE
     Indication: Product used for unknown indication
     Dosage: UNK
     Dates: start: 20220427, end: 20220427
  60. POTASSIUM CHLORIDE [Concomitant]
     Active Substance: POTASSIUM CHLORIDE
     Dosage: UNK
     Dates: start: 20220427, end: 20220429
  61. OXAZEPAM [Concomitant]
     Active Substance: OXAZEPAM
     Indication: Product used for unknown indication
     Dosage: UNK
     Dates: start: 20220426
  62. PREDNISONE [Concomitant]
     Active Substance: PREDNISONE
     Indication: Prophylaxis
     Dosage: 100 MG/AT 10:30 HRS, 100 MG
     Route: 048
     Dates: start: 20220503, end: 20220506
  63. PREDNISONE [Concomitant]
     Active Substance: PREDNISONE
     Dosage: 100 MG
     Route: 048
     Dates: start: 20220426, end: 20220429
  64. PREDNISONE [Concomitant]
     Active Substance: PREDNISONE
     Dosage: 100 MG
     Route: 048
     Dates: start: 20220420, end: 20220423
  65. PREDNISONE [Concomitant]
     Active Substance: PREDNISONE
     Dosage: 1000 MG
     Dates: start: 20220420, end: 20220506
  66. ALLOPURINOL [Concomitant]
     Active Substance: ALLOPURINOL
     Indication: Product used for unknown indication
     Dosage: UNK
     Dates: start: 20220419
  67. BISULEPIN [Concomitant]
     Active Substance: BISULEPIN
     Indication: Premedication
     Dosage: 2 MG
     Route: 048
     Dates: start: 20220426, end: 20220426
  68. BISULEPIN [Concomitant]
     Active Substance: BISULEPIN
     Dosage: 1 MG
     Route: 042
     Dates: start: 20220419, end: 20220419
  69. BISULEPIN [Concomitant]
     Active Substance: BISULEPIN
     Dosage: 2 MG
     Route: 048
     Dates: start: 20220503, end: 20220503
  70. BISULEPIN [Concomitant]
     Active Substance: BISULEPIN
     Dosage: 2 MG
     Route: 048
     Dates: start: 20220426, end: 20220503
  71. BISULEPIN [Concomitant]
     Active Substance: BISULEPIN
     Dosage: 1 DF
     Dates: start: 20220419, end: 20220503
  72. BISULEPIN [Concomitant]
     Active Substance: BISULEPIN
     Dosage: 1 MG
     Route: 042
     Dates: start: 20220419, end: 20220503
  73. TRAMADOL [Concomitant]
     Active Substance: TRAMADOL
     Indication: Product used for unknown indication
     Dosage: UNK
     Dates: start: 20220405
  74. VALACYCLOVIR HYDROCHLORIDE [Concomitant]
     Active Substance: VALACYCLOVIR HYDROCHLORIDE
     Indication: Product used for unknown indication
     Dosage: UNK
     Dates: start: 20220419
  75. BISOPROLOL FUMARATE [Concomitant]
     Active Substance: BISOPROLOL FUMARATE
     Indication: Product used for unknown indication
     Dosage: UNK
     Dates: start: 2004
  76. ZALDIAR [Concomitant]
     Active Substance: ACETAMINOPHEN\TRAMADOL HYDROCHLORIDE
     Indication: Product used for unknown indication
     Dosage: UNK
     Dates: start: 20220405
  77. EUTHYROX [Concomitant]
     Active Substance: LEVOTHYROXINE SODIUM
     Indication: Product used for unknown indication
     Dosage: UNK
     Dates: start: 2014
  78. ONDANSETRON [Concomitant]
     Active Substance: ONDANSETRON
     Indication: Premedication
     Dosage: 8 MG
     Route: 042
     Dates: start: 20220419, end: 20220419
  79. ONDANSETRON [Concomitant]
     Active Substance: ONDANSETRON
     Dosage: 8 DF
     Dates: start: 20220419, end: 20220419
  80. SOLU-MEDROL [Concomitant]
     Active Substance: METHYLPREDNISOLONE SODIUM SUCCINATE
     Indication: Prophylaxis
     Dosage: 80 MG
     Route: 042
     Dates: start: 20220413, end: 20220418
  81. SOLU-MEDROL [Concomitant]
     Active Substance: METHYLPREDNISOLONE SODIUM SUCCINATE
     Dosage: 80 MG
     Route: 042
     Dates: start: 20220419, end: 20220419
  82. SOLU-MEDROL [Concomitant]
     Active Substance: METHYLPREDNISOLONE SODIUM SUCCINATE
     Dosage: 80 MG/NEXT DOSE 19/APR/2022
     Route: 042
     Dates: start: 20220413, end: 20220419
  83. SOLU-MEDROL [Concomitant]
     Active Substance: METHYLPREDNISOLONE SODIUM SUCCINATE
     Dosage: 80 MG/80 MG
     Route: 042
     Dates: start: 20220413, end: 20220419
  84. FILGRASTIM [Concomitant]
     Active Substance: FILGRASTIM
     Indication: Product used for unknown indication
     Dosage: UNK
     Dates: start: 20220423, end: 20220427
  85. PERINDOPRIL ARGININE [Concomitant]
     Active Substance: PERINDOPRIL ARGININE
     Indication: Product used for unknown indication
     Dosage: UNK
     Dates: start: 20220419
  86. PREDNISONE [Concomitant]
     Active Substance: PREDNISONE
     Indication: Prophylaxis
     Dosage: 100 MG
     Dates: start: 20220503, end: 20220506
  87. PREDNISONE [Concomitant]
     Active Substance: PREDNISONE
     Dosage: 100 MG
     Dates: start: 20220426, end: 20220429
  88. PREDNISONE [Concomitant]
     Active Substance: PREDNISONE
     Dosage: 100 MG
     Dates: start: 20220420, end: 20220423
  89. PREDNISONE [Concomitant]
     Active Substance: PREDNISONE
     Dosage: 1000 MG
     Dates: start: 20220420, end: 20220506

REACTIONS (5)
  - Respiratory tract infection [Not Recovered/Not Resolved]
  - Cytokine release syndrome [Recovered/Resolved]
  - Pyrexia [Recovered/Resolved]
  - Atrial fibrillation [Recovered/Resolved]
  - Hypertension [Unknown]

NARRATIVE: CASE EVENT DATE: 20220415
